FAERS Safety Report 16637930 (Version 1)
Quarter: 2019Q3

REPORT INFORMATION
  Report Type: Spontaneous
  Country: GB (occurrence: GB)
  Receive Date: 20190726
  Receipt Date: 20190726
  Transmission Date: 20191004
  Serious: Yes (Life-Threatening)
  Sender: FDA-Public Use
  Company Number: GB-TEVA-2019-GB-1083739

PATIENT
  Age: 58 Year
  Sex: Male

DRUGS (14)
  1. OMEPRAZOLE. [Concomitant]
     Active Substance: OMEPRAZOLE
     Dosage: 1 DOSAGE FORMS
     Dates: start: 20181213
  2. NICOTINE. [Concomitant]
     Active Substance: NICOTINE
     Dosage: 1 DOSAGE FORMS
     Dates: start: 20181228, end: 20190103
  3. DIAZEPAM. [Concomitant]
     Active Substance: DIAZEPAM
     Dosage: 1 DOSAGE FORMS
     Route: 054
     Dates: start: 20181213, end: 20190112
  4. FUROSEMIDE. [Concomitant]
     Active Substance: FUROSEMIDE
     Dosage: 2 DOSAGE FORMS
     Dates: start: 20181213
  5. RAMIPRIL. [Concomitant]
     Active Substance: RAMIPRIL
     Dosage: 1 DOSAGE FORMS
     Dates: start: 20181213
  6. VITAMIN B [Concomitant]
     Active Substance: VITAMIN B
     Dosage: 1 DOSAGE FORMS
     Dates: start: 20181213, end: 20190110
  7. PROMETHAZINE HYDROCHLORIDE. [Concomitant]
     Active Substance: PROMETHAZINE HYDROCHLORIDE
     Dosage: 1 DOSAGE FORMS
     Dates: start: 20181219, end: 20181227
  8. QUININE [Concomitant]
     Active Substance: QUININE
     Dosage: 1 DOSAGE FORMS
     Dates: start: 20181213
  9. THIAMINE. [Concomitant]
     Active Substance: THIAMINE
     Dosage: 1 DOSAGE FORMS
     Dates: start: 20181213, end: 20190110
  10. IBUPROFEN. [Suspect]
     Active Substance: IBUPROFEN
     Dosage: 400 MILLIGRAM
     Dates: start: 20190211, end: 20190211
  11. CHLORDIAZEPOXIDE. [Concomitant]
     Active Substance: CHLORDIAZEPOXIDE
     Dosage: VARIABLE DOSE
     Dates: start: 20181213, end: 20181228
  12. EDOXABAN [Concomitant]
     Active Substance: EDOXABAN TOSYLATE
     Dosage: 1 DOSAGE FORMS
     Dates: start: 20181213
  13. PARACETAMOL [Concomitant]
     Active Substance: ACETAMINOPHEN
     Dosage: 1-2
     Dates: start: 20190211, end: 20190211
  14. TRAMADOL. [Concomitant]
     Active Substance: TRAMADOL
     Dosage: 1 DOSAGE FORMS
     Dates: start: 20190203

REACTIONS (1)
  - Rectal haemorrhage [Unknown]
